FAERS Safety Report 22173418 (Version 3)
Quarter: 2023Q2

REPORT INFORMATION
  Report Type: Report from Study
  Country: NL (occurrence: NL)
  Receive Date: 20230404
  Receipt Date: 20230605
  Transmission Date: 20230722
  Serious: Yes (Other)
  Sender: FDA-Public Use
  Company Number: NL-BAYER-2023A028735

PATIENT
  Age: 56 Year
  Sex: Male

DRUGS (1)
  1. ADEMPAS [Suspect]
     Active Substance: RIOCIGUAT
     Indication: Pulmonary hypertension
     Dosage: 1.5 MG, TID
     Route: 048
     Dates: start: 20230214

REACTIONS (13)
  - Chest pain [Recovering/Resolving]
  - Dyspnoea [Recovering/Resolving]
  - Abdominal symptom [Recovering/Resolving]
  - Headache [Recovering/Resolving]
  - Diaphragmatic spasm [Recovering/Resolving]
  - Disturbance in attention [Recovering/Resolving]
  - Headache [Recovering/Resolving]
  - Dyspnoea [Recovering/Resolving]
  - Nasal congestion [Not Recovered/Not Resolved]
  - Eye inflammation [Not Recovered/Not Resolved]
  - Visual impairment [None]
  - Eye pruritus [Recovering/Resolving]
  - Off label use [None]

NARRATIVE: CASE EVENT DATE: 20230214
